FAERS Safety Report 10064872 (Version 1)
Quarter: 2014Q1

REPORT INFORMATION
  Report Type: Spontaneous
  Country: US (occurrence: None)
  Receive Date: 20140328
  Receipt Date: 20140328
  Transmission Date: 20141002
  Serious: Yes (Other)
  Sender: FDA-Public Use
  Company Number: 1000052574

PATIENT
  Age: 78 Year
  Sex: Male

DRUGS (5)
  1. LINZESS [Suspect]
     Indication: CONSTIPATION
     Dates: start: 2013, end: 2013
  2. OXYCODONE (OXYCODONE) (OXYCODONE) [Concomitant]
  3. OXYCONTIN (OXYCODONE HYDROCHLORIDE) (OXYCODONE HYDROCHLORIDE) [Concomitant]
  4. DULCOLAX (BISACODYL) (BISACODYL) [Concomitant]
  5. MIRALAX (POLYETHYLENE GLYCOL) (POLYETHYLENE GLYCOL) [Concomitant]

REACTIONS (4)
  - Drug ineffective [None]
  - Nausea [None]
  - Feeling abnormal [None]
  - Faeces hard [None]
